FAERS Safety Report 6620740-3 (Version None)
Quarter: 2010Q1

REPORT INFORMATION
  Report Type: 
  Country: None (occurrence: None)
  Receive Date: 20100309
  Receipt Date: 20100304
  Transmission Date: 20100710
  Serious: Yes (Death, Other)
  Sender: FDA-Public Use
  Company Number: US-BAXTER-2010BH001569

PATIENT
  Age: 66 Year
  Sex: Male

DRUGS (48)
  1. HEPARIN SODIUM INJECTION [Suspect]
     Indication: DRUG USE FOR UNKNOWN INDICATION
     Route: 065
     Dates: start: 20071226, end: 20071226
  2. HEPARIN SODIUM INJECTION [Suspect]
     Route: 065
     Dates: start: 20071226, end: 20071226
  3. HEPARIN SODIUM INJECTION [Suspect]
     Route: 065
     Dates: start: 20071231, end: 20071231
  4. HEPARIN SODIUM INJECTION [Suspect]
     Route: 065
     Dates: start: 20080103, end: 20080103
  5. HEPARIN SODIUM INJECTION [Suspect]
     Route: 065
     Dates: start: 20080104, end: 20080104
  6. HEPARIN SODIUM INJECTION [Suspect]
     Route: 065
     Dates: start: 20080104, end: 20080104
  7. HEPARIN SODIUM INJECTION [Suspect]
     Route: 065
     Dates: start: 20080105, end: 20080105
  8. HEPARIN SODIUM INJECTION [Suspect]
     Route: 065
     Dates: start: 20080105, end: 20080105
  9. HEPARIN SODIUM INJECTION [Suspect]
     Route: 065
     Dates: start: 20080105, end: 20080105
  10. HEPARIN SODIUM INJECTION [Suspect]
     Route: 065
     Dates: start: 20080106, end: 20080106
  11. HEPARIN SODIUM INJECTION [Suspect]
     Route: 065
     Dates: start: 20080107, end: 20080107
  12. HEPARIN SODIUM INJECTION [Suspect]
     Route: 065
     Dates: start: 20080107, end: 20080107
  13. HEPARIN SODIUM INJECTION [Suspect]
     Route: 065
     Dates: start: 20080108, end: 20080108
  14. HEPARIN SODIUM INJECTION [Suspect]
     Route: 065
     Dates: start: 20080109, end: 20080109
  15. HEPARIN SODIUM INJECTION [Suspect]
     Route: 065
     Dates: start: 20080110, end: 20080110
  16. HEPARIN SODIUM INJECTION [Suspect]
     Route: 065
     Dates: start: 20080111, end: 20080111
  17. HEPARIN SODIUM INJECTION [Suspect]
     Route: 065
     Dates: start: 20080112, end: 20080112
  18. HEPARIN SODIUM INJECTION [Suspect]
     Route: 065
     Dates: start: 20080112, end: 20080112
  19. HEPARIN SODIUM INJECTION [Suspect]
     Route: 065
     Dates: start: 20080113, end: 20080113
  20. HEPARIN SODIUM INJECTION [Suspect]
     Route: 065
     Dates: start: 20080114, end: 20080114
  21. HEPARIN SODIUM INJECTION [Suspect]
     Route: 065
     Dates: start: 20080114, end: 20080114
  22. HEPARIN SODIUM INJECTION [Suspect]
     Route: 065
     Dates: start: 20080114, end: 20080114
  23. HEPARIN SODIUM INJECTION [Suspect]
     Route: 065
     Dates: start: 20080115, end: 20080115
  24. ATENOLOL [Concomitant]
     Indication: DRUG USE FOR UNKNOWN INDICATION
     Route: 065
  25. LISINOPRIL [Concomitant]
     Indication: DRUG USE FOR UNKNOWN INDICATION
     Route: 065
  26. FAMOTIDINE [Concomitant]
     Indication: DRUG USE FOR UNKNOWN INDICATION
     Route: 065
  27. ASPIRIN [Concomitant]
     Indication: DRUG USE FOR UNKNOWN INDICATION
     Route: 065
  28. DILTIAZEM HCL [Concomitant]
     Indication: DRUG USE FOR UNKNOWN INDICATION
     Route: 065
  29. CLOPIDOGREL [Concomitant]
     Indication: DRUG USE FOR UNKNOWN INDICATION
     Route: 065
  30. NITROGLYCERIN [Concomitant]
     Indication: DRUG USE FOR UNKNOWN INDICATION
     Route: 065
  31. ACETAMINOPHEN [Concomitant]
     Indication: DRUG USE FOR UNKNOWN INDICATION
     Route: 065
  32. CEFAZOLIN [Concomitant]
     Indication: DRUG USE FOR UNKNOWN INDICATION
     Route: 065
  33. ZOLPIDEM [Concomitant]
     Indication: DRUG USE FOR UNKNOWN INDICATION
     Route: 065
  34. LORAZEPAM [Concomitant]
     Indication: DRUG USE FOR UNKNOWN INDICATION
     Route: 065
  35. ALBUTEROL [Concomitant]
     Indication: DRUG USE FOR UNKNOWN INDICATION
     Route: 065
  36. AMIODARONE HCL [Concomitant]
     Indication: DRUG USE FOR UNKNOWN INDICATION
     Route: 065
  37. FLUCONAZOLE [Concomitant]
     Indication: DRUG USE FOR UNKNOWN INDICATION
     Route: 065
  38. EPOETIN NOS [Concomitant]
     Indication: DRUG USE FOR UNKNOWN INDICATION
     Route: 065
  39. METRONIDAZOLE [Concomitant]
     Indication: DRUG USE FOR UNKNOWN INDICATION
     Route: 065
  40. INSULIN [Concomitant]
     Indication: DRUG USE FOR UNKNOWN INDICATION
     Route: 065
  41. METOCLOPRAMIDE [Concomitant]
     Indication: DRUG USE FOR UNKNOWN INDICATION
     Route: 065
  42. LEVOTHYROXINE [Concomitant]
     Indication: DRUG USE FOR UNKNOWN INDICATION
     Route: 065
  43. FENTANYL [Concomitant]
     Indication: DRUG USE FOR UNKNOWN INDICATION
     Route: 065
  44. DEXTROSE [Concomitant]
     Indication: DRUG USE FOR UNKNOWN INDICATION
     Route: 065
  45. SODIUM CHLORIDE [Concomitant]
     Indication: DRUG USE FOR UNKNOWN INDICATION
     Route: 065
  46. MANNITOL [Concomitant]
     Indication: DRUG USE FOR UNKNOWN INDICATION
     Route: 065
  47. MORPHINE [Concomitant]
     Indication: DRUG USE FOR UNKNOWN INDICATION
     Route: 065
  48. VANCOMYCIN HCL [Concomitant]
     Indication: DRUG USE FOR UNKNOWN INDICATION
     Route: 065

REACTIONS (4)
  - ARTERIOSCLEROSIS CORONARY ARTERY [None]
  - MULTI-ORGAN FAILURE [None]
  - MYOCARDIAL ISCHAEMIA [None]
  - RENAL FAILURE ACUTE [None]
